FAERS Safety Report 21926677 (Version 1)
Quarter: 2023Q1

REPORT INFORMATION
  Report Type: Spontaneous
  Country: US (occurrence: None)
  Receive Date: 20230127
  Receipt Date: 20230127
  Transmission Date: 20230417
  Serious: No
  Sender: FDA-Public Use
  Company Number: None

PATIENT
  Sex: Female

DRUGS (1)
  1. EVEROLIMUS [Suspect]
     Active Substance: EVEROLIMUS
     Dosage: 10MG DAILY ORAL
     Route: 048

REACTIONS (4)
  - Pain [None]
  - Hepatic pain [None]
  - Blood glucose increased [None]
  - Decreased appetite [None]
